FAERS Safety Report 8189641-6 (Version None)
Quarter: 2012Q1

REPORT INFORMATION
  Report Type: 
  Country: None (occurrence: None)
  Receive Date: 20120305
  Receipt Date: 20120213
  Transmission Date: 20120608
  Serious: Yes (Hospitalization)
  Sender: FDA-Public Use
  Company Number: FRA-CLT-2012010

PATIENT
  Age: 28 Year
  Sex: Male

DRUGS (7)
  1. CYSTADANE [Suspect]
     Indication: HOMOCYSTINURIA
     Dosage: 8 G EVERY DAY, 10 G EVERY DAY ORAL
     Route: 048
     Dates: start: 19990621, end: 20091115
  2. CYSTADANE [Suspect]
     Indication: HOMOCYSTINURIA
     Dosage: 8 G EVERY DAY, 10 G EVERY DAY ORAL
     Route: 048
     Dates: start: 20091116
  3. VITAMIN B-12 [Concomitant]
  4. LEUCOVORIN CALCIUM [Concomitant]
  5. LOVENOX [Concomitant]
  6. ENOXAPARIN SODIUM [Concomitant]
  7. VITAMIN B6 [Concomitant]

REACTIONS (6)
  - POLLAKIURIA [None]
  - DIARRHOEA [None]
  - ARTHRODESIS [None]
  - CONDITION AGGRAVATED [None]
  - ARACHNODACTYLY [None]
  - URINARY INCONTINENCE [None]
